FAERS Safety Report 17574665 (Version 1)
Quarter: 2020Q1

REPORT INFORMATION
  Report Type: Spontaneous
  Country: KR (occurrence: KR)
  Receive Date: 20200324
  Receipt Date: 20200324
  Transmission Date: 20200409
  Serious: Yes (Life-Threatening, Hospitalization, Other)
  Sender: FDA-Public Use
  Company Number: KR-009507513-2003KOR007308

PATIENT
  Age: 45 Year
  Sex: Female

DRUGS (1)
  1. PEMBROLIZUMAB. [Suspect]
     Active Substance: PEMBROLIZUMAB
     Indication: THYMOMA
     Dosage: 200 MG

REACTIONS (5)
  - Hepatic function abnormal [Unknown]
  - Product use in unapproved indication [Unknown]
  - Myasthenia gravis crisis [Unknown]
  - Immune-mediated myocarditis [Unknown]
  - Multiple organ dysfunction syndrome [Unknown]
